FAERS Safety Report 4754381-X (Version None)
Quarter: 2005Q3

REPORT INFORMATION
  Report Type: 
  Country: None (occurrence: None)
  Receive Date: 20050825
  Receipt Date: 20050815
  Transmission Date: 20060218
  Serious: Yes (Death)
  Sender: FDA-Public Use
  Company Number: 216912

PATIENT
  Sex: Female

DRUGS (1)
  1. SOMATROPIN (SOMATROPIN) [Suspect]
     Indication: PRADER-WILLI SYNDROME
     Dosage: 0.24 MG/K/W

REACTIONS (5)
  - CARDIOPULMONARY FAILURE [None]
  - FLUID RETENTION [None]
  - PULMONARY ARTERIAL PRESSURE INCREASED [None]
  - RESPIRATORY DISORDER [None]
  - RIGHT VENTRICULAR FAILURE [None]
